FAERS Safety Report 25625987 (Version 1)
Quarter: 2025Q3

REPORT INFORMATION
  Report Type: Report from Study
  Country: US (occurrence: US)
  Receive Date: 20250731
  Receipt Date: 20250731
  Transmission Date: 20251021
  Serious: Yes (Other)
  Sender: ALEXION PHARMACEUTICALS
  Company Number: US-AstraZeneca-CH-00918095A

PATIENT
  Age: 56 Year
  Sex: Female

DRUGS (1)
  1. STRENSIQ [Suspect]
     Active Substance: ASFOTASE ALFA
     Indication: Hypophosphatasia
     Route: 065

REACTIONS (12)
  - Rheumatoid arthritis [Unknown]
  - Bronchiectasis [Unknown]
  - Herpes zoster [Unknown]
  - Injection site discolouration [Unknown]
  - Oxygen saturation decreased [Unknown]
  - Dizziness [Unknown]
  - Asthma [Unknown]
  - Inflammation [Unknown]
  - Weight decreased [Unknown]
  - Fatigue [Unknown]
  - Vitamin B6 decreased [Unknown]
  - Blood immunoglobulin G decreased [Unknown]

NARRATIVE: CASE EVENT DATE: 20250718
